FAERS Safety Report 5882785-0 (Version None)
Quarter: 2008Q3

REPORT INFORMATION
  Report Type: 
  Country: None (occurrence: None)
  Receive Date: 20080913
  Receipt Date: 20080818
  Transmission Date: 20090109
  Serious: No
  Sender: FDA-Public Use
  Company Number: US-ABBOTT-08P-163-0471543-00

PATIENT
  Sex: Female
  Weight: 79.904 kg

DRUGS (7)
  1. HUMIRA [Suspect]
     Indication: PSORIATIC ARTHROPATHY
     Route: 050
     Dates: start: 20080408
  2. METHOTREXATE [Concomitant]
     Indication: PSORIATIC ARTHROPATHY
     Route: 048
     Dates: start: 20080530, end: 20080618
  3. METHOTREXATE [Concomitant]
     Route: 048
     Dates: start: 20080618, end: 20080730
  4. METHOTREXATE [Concomitant]
     Route: 048
     Dates: start: 20080730
  5. ESTRADIOL [Concomitant]
     Indication: HORMONE REPLACEMENT THERAPY
  6. ALPRAZOLAM [Concomitant]
     Indication: ANXIETY
     Dates: start: 19930101
  7. NORTRIPTYLINE HCL [Concomitant]
     Indication: NERVE INJURY
     Dates: start: 20020101

REACTIONS (3)
  - ARTHRALGIA [None]
  - DRUG INEFFECTIVE [None]
  - PSORIASIS [None]
